FAERS Safety Report 5055288-3 (Version None)
Quarter: 2006Q3

REPORT INFORMATION
  Report Type: 
  Country: None (occurrence: None)
  Receive Date: 20060714
  Receipt Date: 20060704
  Transmission Date: 20061208
  Serious: Yes (Other)
  Sender: FDA-Public Use
  Company Number: 13862

PATIENT
  Age: 33 Year
  Sex: Female
  Weight: 49 kg

DRUGS (5)
  1. METHOTREXATE SODIUM [Suspect]
     Indication: BONE SARCOMA
     Dosage: 15 G DAILY
     Dates: start: 20060110, end: 20060110
  2. METHOTREXATE SODIUM [Suspect]
     Indication: BONE SARCOMA
     Dosage: 15 G DAILY
     Dates: start: 20060117, end: 20060117
  3. MEYLON [Concomitant]
  4. DIAMOX [Concomitant]
  5. NEOPHAGEN [Concomitant]

REACTIONS (3)
  - ALANINE AMINOTRANSFERASE INCREASED [None]
  - ASPARTATE AMINOTRANSFERASE INCREASED [None]
  - BACK PAIN [None]
